FAERS Safety Report 7389857-2 (Version None)
Quarter: 2011Q2

REPORT INFORMATION
  Report Type: 
  Country: None (occurrence: None)
  Receive Date: 20110401
  Receipt Date: 20110326
  Transmission Date: 20111010
  Serious: Yes (Hospitalization, Other)
  Sender: FDA-Public Use
  Company Number: US-US-EMD SERONO, INC.-7050364

PATIENT
  Sex: Female

DRUGS (3)
  1. REBIF [Suspect]
     Indication: MULTIPLE SCLEROSIS
     Route: 058
     Dates: start: 20100602
  2. KLONOPIN [Concomitant]
     Dates: start: 20100101
  3. UNSPECIFIED PAIN MEDICATIONS [Concomitant]
     Indication: PAIN

REACTIONS (7)
  - HEADACHE [None]
  - URINARY TRACT INFECTION [None]
  - URINARY RETENTION [None]
  - PYREXIA [None]
  - INTERVERTEBRAL DISC PROTRUSION [None]
  - SUICIDAL BEHAVIOUR [None]
  - DEPRESSION [None]
